FAERS Safety Report 19426884 (Version 1)
Quarter: 2021Q2

REPORT INFORMATION
  Report Type: Spontaneous
  Country: US (occurrence: US)
  Receive Date: 20210616
  Receipt Date: 20210616
  Transmission Date: 20210717
  Serious: No
  Sender: FDA-Public Use
  Company Number: US-ENDO PHARMACEUTICALS INC-2020-007111

PATIENT
  Sex: Female
  Weight: 68.03 kg

DRUGS (6)
  1. SUPPRELIN LA [Suspect]
     Active Substance: HISTRELIN ACETATE
     Indication: PRODUCT USED FOR UNKNOWN INDICATION
     Dosage: UNK UNKNOWN, ONCE A YEAR
     Route: 065
     Dates: start: 2018
  2. SUPPRELIN LA [Suspect]
     Active Substance: HISTRELIN ACETATE
     Dosage: UNK UNKNOWN, ONCE A YEAR
     Route: 065
     Dates: start: 2019
  3. SUPPRELIN LA [Suspect]
     Active Substance: HISTRELIN ACETATE
     Dosage: UNK UNKNOWN, ONCE A YEAR
     Route: 065
     Dates: start: 2019
  4. SUPPRELIN LA [Suspect]
     Active Substance: HISTRELIN ACETATE
     Dosage: UNK UNKNOWN, ONCE A YEAR
     Route: 065
     Dates: start: 2020
  5. SUPPRELIN LA [Suspect]
     Active Substance: HISTRELIN ACETATE
     Indication: PRODUCT USED FOR UNKNOWN INDICATION
     Dosage: UNK UNKNOWN, ONCE A YEAR
     Route: 065
     Dates: start: 2018
  6. SUPPRELIN LA [Suspect]
     Active Substance: HISTRELIN ACETATE
     Dosage: UNK UNKNOWN, ONCE A YEAR
     Route: 065
     Dates: start: 2020

REACTIONS (2)
  - Sunburn [Unknown]
  - Weight increased [Unknown]

NARRATIVE: CASE EVENT DATE: 2018
